FAERS Safety Report 4901277-6 (Version None)
Quarter: 2006Q1

REPORT INFORMATION
  Report Type: 
  Country: None (occurrence: None)
  Receive Date: 20060206
  Receipt Date: 20060127
  Transmission Date: 20060701
  Serious: Yes (Other)
  Sender: FDA-Public Use
  Company Number: US-AVENTIS-200611083US

PATIENT
  Age: 79 Year
  Sex: Male

DRUGS (3)
  1. LOVENOX [Suspect]
     Indication: PROPHYLAXIS
     Route: 058
  2. LOVENOX [Suspect]
  3. COUMADIN [Concomitant]
     Dosage: DOSE: UNK

REACTIONS (5)
  - CEREBROVASCULAR ACCIDENT [None]
  - HAEMATOMA [None]
  - HAEMORRHAGE [None]
  - MOVEMENT DISORDER [None]
  - WALKING AID USER [None]
